FAERS Safety Report 6311145-3 (Version None)
Quarter: 2009Q3

REPORT INFORMATION
  Report Type: 
  Country: None (occurrence: None)
  Receive Date: 20090817
  Receipt Date: 20090724
  Transmission Date: 20100115
  Serious: Yes (Hospitalization, Other)
  Sender: FDA-Public Use
  Company Number: US-BAYER-200926046NA

PATIENT
  Age: 50 Year
  Sex: Female
  Weight: 102 kg

DRUGS (3)
  1. SORAFENIB [Suspect]
     Indication: MALIGNANT GLIOMA
     Dosage: TOTAL DAILY DOSE: 400 MG  UNIT DOSE: 200 MG
     Route: 048
     Dates: start: 20090505, end: 20090707
  2. TEMODAR [Suspect]
     Indication: MALIGNANT GLIOMA
     Dosage: TOTAL DAILY DOSE: 150 MG
     Dates: start: 20090505, end: 20090518
  3. SULFONAMIDE [Concomitant]
     Dates: end: 20090707

REACTIONS (4)
  - HEADACHE [None]
  - LYMPHOPENIA [None]
  - RASH [None]
  - SWELLING FACE [None]
